FAERS Safety Report 8764280 (Version 1)
Quarter: 2012Q4

REPORT INFORMATION
  Report Type: 
  Country: JP (occurrence: JP)
  Receive Date: 20120831
  Receipt Date: 20120831
  Transmission Date: 20130627
  Serious: Yes (Hospitalization)
  Sender: FDA-Public Use
  Company Number: JP-ABBOTT-11P-087-0852662-00

PATIENT
  Sex: Male
  Weight: 56 kg

DRUGS (7)
  1. HUMIRA 40 MG/ 0.8 ML PRE-FILLED SYRINGE [Suspect]
     Indication: CROHN^S DISEASE
     Route: 058
     Dates: start: 20110803, end: 20110803
  2. HUMIRA 40 MG/ 0.8 ML PRE-FILLED SYRINGE [Suspect]
  3. HUMIRA 40 MG/ 0.8 ML PRE-FILLED SYRINGE [Suspect]
     Dates: start: 20110905
  4. MESALAZINE [Concomitant]
     Indication: CROHN^S DISEASE
  5. MEPITIOSTANE [Concomitant]
     Indication: ANAEMIA
  6. BIFIDOBACTERIUM [Concomitant]
     Indication: CROHN^S DISEASE
  7. PRECIPITATED CALCIUM CARBONATE [Concomitant]
     Indication: HYPERPHOSPHATAEMIA

REACTIONS (2)
  - Bacterial test positive [Unknown]
  - Crohn^s disease [Unknown]
